FAERS Safety Report 26107375 (Version 1)
Quarter: 2025Q4

REPORT INFORMATION
  Report Type: Spontaneous
  Country: US (occurrence: US)
  Receive Date: 20251201
  Receipt Date: 20251201
  Transmission Date: 20260118
  Serious: No
  Sender: SANDOZ
  Company Number: US-SANDOZ-SDZ2025US090002

PATIENT
  Sex: Female

DRUGS (2)
  1. JUBBONTI [Suspect]
     Active Substance: DENOSUMAB-BBDZ
     Indication: Arthritis
     Dosage: UNK
     Route: 065
     Dates: start: 20251126
  2. JUBBONTI [Suspect]
     Active Substance: DENOSUMAB-BBDZ
     Indication: Rheumatic disorder

REACTIONS (1)
  - Drug dose omission by device [Unknown]

NARRATIVE: CASE EVENT DATE: 20251126
